FAERS Safety Report 5931861-2 (Version None)
Quarter: 2008Q4

REPORT INFORMATION
  Report Type: 
  Country: None (occurrence: None)
  Receive Date: 20081027
  Receipt Date: 20081021
  Transmission Date: 20090506
  Serious: Yes (Other)
  Sender: FDA-Public Use
  Company Number: JP-ALLERGAN-0813520US

PATIENT
  Sex: Female

DRUGS (2)
  1. ALESION TABLET [Suspect]
     Indication: DRUG USE FOR UNKNOWN INDICATION
     Dosage: UNK, UNK
     Route: 048
  2. CELESTAMINE TAB [Concomitant]
     Indication: URTICARIA
     Route: 048

REACTIONS (3)
  - HYPERHIDROSIS [None]
  - LOSS OF CONSCIOUSNESS [None]
  - PALLOR [None]
